FAERS Safety Report 18514625 (Version 1)
Quarter: 2020Q4

REPORT INFORMATION
  Report Type: Spontaneous
  Country: US (occurrence: US)
  Receive Date: 20201117
  Receipt Date: 20201117
  Transmission Date: 20210114
  Serious: No
  Sender: FDA-Public Use
  Company Number: US-NALPROPION PHARMACEUTICALS INC.-2020-009909

PATIENT
  Age: 42 Year
  Sex: Female
  Weight: 79.82 kg

DRUGS (3)
  1. WELLBUTRIN [Suspect]
     Active Substance: BUPROPION HYDROCHLORIDE
     Indication: PANIC ATTACK
     Dosage: 150 MG, QD (STARTED TWO MONTHS AGO)
     Route: 048
  2. CONTRAVE [Suspect]
     Active Substance: BUPROPION HYDROCHLORIDE\NALTREXONE HYDROCHLORIDE
     Indication: WEIGHT DECREASED
     Dosage: ONE TABLET DAILY
     Route: 048
     Dates: start: 20200221, end: 20200314
  3. VITAMIN B12 [Concomitant]
     Active Substance: CYANOCOBALAMIN
     Indication: VITAMIN B12 DECREASED
     Dosage: MONTHLY (STARTED: THREE OR FOUR MONTHS AGO; ROUTE: INJECTION)
     Route: 050

REACTIONS (8)
  - Dry mouth [Recovered/Resolved]
  - Feeling abnormal [Recovered/Resolved]
  - Product prescribing error [Unknown]
  - Mydriasis [Recovered/Resolved]
  - Insomnia [Recovered/Resolved]
  - Head discomfort [Recovered/Resolved]
  - Tinnitus [Recovering/Resolving]
  - Contraindicated product administered [Unknown]

NARRATIVE: CASE EVENT DATE: 202002
